FAERS Safety Report 17493252 (Version 1)
Quarter: 2020Q1

REPORT INFORMATION
  Report Type: Spontaneous
  Country: US (occurrence: US)
  Receive Date: 20200304
  Receipt Date: 20200304
  Transmission Date: 20200409
  Serious: Yes (Hospitalization)
  Sender: FDA-Public Use
  Company Number: US-ROCHE-2560281

PATIENT
  Age: 55 Year
  Sex: Female

DRUGS (1)
  1. ACTEMRA [Suspect]
     Active Substance: TOCILIZUMAB
     Indication: BREAST CANCER
     Route: 058
     Dates: start: 20180619

REACTIONS (6)
  - Foot fracture [Unknown]
  - Ligament rupture [Unknown]
  - Off label use [Unknown]
  - Ligament injury [Unknown]
  - Fall [Unknown]
  - Intentional product use issue [Unknown]

NARRATIVE: CASE EVENT DATE: 20191215
